FAERS Safety Report 11360197 (Version 1)
Quarter: 2015Q3

REPORT INFORMATION
  Report Type: Report from Study
  Country: GB (occurrence: GB)
  Receive Date: 20150810
  Receipt Date: 20150810
  Transmission Date: 20151125
  Serious: Yes (Other)
  Sender: FDA-Public Use
  Company Number: GB-ROCHE-1618761

PATIENT
  Age: 73 Year

DRUGS (1)
  1. BEVACIZUMAB [Suspect]
     Active Substance: BEVACIZUMAB
     Indication: MALIGNANT MELANOMA
     Dosage: LAST DOSE  712.5 MG OF BEVACIZUMAB WAS ADMINISTERED ON 13/APR/2010 AT 11:15
     Route: 042
     Dates: start: 20100323, end: 20100413

REACTIONS (1)
  - Skin ulcer [Recovered/Resolved]

NARRATIVE: CASE EVENT DATE: 20100426
